FAERS Safety Report 4714354-X (Version None)
Quarter: 2005Q3

REPORT INFORMATION
  Report Type: 
  Country: None (occurrence: None)
  Receive Date: 20050714
  Receipt Date: 20050705
  Transmission Date: 20060218
  Serious: Yes (Death, Other)
  Sender: FDA-Public Use
  Company Number: FR-BRISTOL-MYERS SQUIBB COMPANY-13030473

PATIENT
  Sex: Male

DRUGS (3)
  1. GLUCOPHAGE [Suspect]
     Indication: DIABETES MELLITUS NON-INSULIN-DEPENDENT
     Route: 048
  2. APROVEL [Concomitant]
  3. DICLOFENAC SODIUM [Concomitant]
     Indication: SHOULDER PAIN

REACTIONS (2)
  - LACTIC ACIDOSIS [None]
  - SHOCK [None]
